FAERS Safety Report 7494957-2 (Version None)
Quarter: 2011Q2

REPORT INFORMATION
  Report Type: 
  Country: None (occurrence: None)
  Receive Date: 20110520
  Receipt Date: 20110509
  Transmission Date: 20111010
  Serious: Yes (Other)
  Sender: FDA-Public Use
  Company Number: US-UCBSA-032579

PATIENT
  Sex: Male

DRUGS (21)
  1. XYREM [Suspect]
     Indication: SOMNOLENCE
     Dosage: TWICE NIGHTLY
     Route: 048
     Dates: start: 20101101
  2. XYREM [Suspect]
     Dosage: TWICE NIGHTLY
     Route: 048
     Dates: start: 20110301, end: 20110101
  3. XYREM [Suspect]
     Dosage: TWICE NIGHTLY
     Route: 048
     Dates: start: 20110301, end: 20110101
  4. XYREM [Suspect]
     Dosage: TAPER DOWN DOSE
     Route: 048
     Dates: start: 20110101, end: 20110101
  5. XYREM [Suspect]
     Dosage: TWICE NIGHTLY
     Route: 048
     Dates: start: 20110510, end: 20110510
  6. XYREM [Suspect]
     Indication: SLEEP DISORDER DUE TO GENERAL MEDICAL CONDITION, INSOMNIA TYPE
     Dosage: TWICE NIGHTLY
     Route: 048
     Dates: start: 20101101
  7. XYREM [Suspect]
     Dosage: TWICE NIGHTLY
     Route: 048
     Dates: start: 20110511
  8. KEPPRA [Suspect]
     Dates: start: 20110501
  9. XYREM [Suspect]
     Dosage: TWICE NIGHTLY
     Route: 048
     Dates: start: 20110301, end: 20110101
  10. XYREM [Suspect]
     Dosage: TWICE NIGHTLY
     Route: 048
     Dates: start: 20110101, end: 20110509
  11. XYREM [Suspect]
     Dosage: TWICE NIGHTLY
     Route: 048
     Dates: start: 20110101, end: 20110509
  12. XYREM [Suspect]
     Dosage: TWICE NIGHTLY
     Route: 048
     Dates: start: 20110101, end: 20110509
  13. XYREM [Suspect]
     Dosage: TAPER DOWN DOSE
     Route: 048
     Dates: start: 20110101, end: 20110101
  14. XYREM [Suspect]
     Dosage: TWICE NIGHTLY
     Route: 048
     Dates: start: 20110510, end: 20110510
  15. XYREM [Suspect]
     Dosage: TWICE NIGHTLY
     Route: 048
     Dates: start: 20110511
  16. XYREM [Suspect]
     Dosage: TWICE NIGHTLY
     Route: 048
     Dates: start: 20110511
  17. KEPPRA [Suspect]
     Dates: start: 20110509, end: 20110509
  18. XYREM [Suspect]
     Dosage: TAPER DOWN DOSE
     Route: 048
     Dates: start: 20110101, end: 20110101
  19. KEPPRA [Suspect]
     Indication: CONVULSION
     Dates: end: 20110508
  20. XYREM [Suspect]
     Indication: NARCOLEPSY
     Dosage: TWICE NIGHTLY
     Route: 048
     Dates: start: 20101101
  21. XYREM [Suspect]
     Dosage: TWICE NIGHTLY
     Route: 048
     Dates: start: 20110510, end: 20110510

REACTIONS (4)
  - SUDDEN ONSET OF SLEEP [None]
  - INSOMNIA [None]
  - FALL [None]
  - LOSS OF CONSCIOUSNESS [None]
